FAERS Safety Report 8550671-3 (Version None)
Quarter: 2012Q3

REPORT INFORMATION
  Report Type: 
  Country: None (occurrence: None)
  Receive Date: 20120730
  Receipt Date: 20120723
  Transmission Date: 20120928
  Serious: Yes (Hospitalization)
  Sender: FDA-Public Use
  Company Number: US-GLAXOSMITHKLINE-A0888769A

PATIENT
  Age: 51 Year
  Sex: Female
  Weight: 95.5 kg

DRUGS (9)
  1. AVANDIA [Suspect]
     Indication: DIABETES MELLITUS
     Dosage: 8MG PER DAY
     Route: 048
  2. LOPRESSOR [Concomitant]
  3. GLUCOTROL XL [Concomitant]
  4. FLOVENT [Concomitant]
  5. PROVENTIL [Concomitant]
  6. AVANDAMET [Suspect]
     Indication: DIABETES MELLITUS
     Route: 048
  7. SYNTHROID [Concomitant]
  8. SEREVENT [Concomitant]
  9. ZESTRIL [Concomitant]

REACTIONS (2)
  - MYOCARDIAL INFARCTION [None]
  - CARDIAC FAILURE CONGESTIVE [None]
